FAERS Safety Report 8505983-6 (Version None)
Quarter: 2012Q3

REPORT INFORMATION
  Report Type: 
  Country: None (occurrence: None)
  Receive Date: 20120712
  Receipt Date: 20120705
  Transmission Date: 20120928
  Serious: Yes (Life-Threatening)
  Sender: FDA-Public Use
  Company Number: SI-GLAXOSMITHKLINE-B0808592A

PATIENT
  Sex: Male
  Weight: 90 kg

DRUGS (6)
  1. AKINETON [Concomitant]
     Dosage: 2TAB PER DAY
     Route: 065
  2. POTIGA [Suspect]
     Indication: PARTIAL SEIZURES WITH SECONDARY GENERALISATION
     Dosage: 100MG THREE TIMES PER DAY
     Route: 065
     Dates: start: 20120118, end: 20120615
  3. HALDOL [Concomitant]
     Dosage: 15MG PER DAY
     Route: 065
  4. DEPAKENE [Concomitant]
     Indication: PARTIAL SEIZURES WITH SECONDARY GENERALISATION
     Dosage: 1000MG PER DAY
     Route: 065
  5. TEGRETOL [Concomitant]
     Indication: PARTIAL SEIZURES WITH SECONDARY GENERALISATION
     Dosage: 400MG PER DAY
     Route: 065
  6. DIAZEPAM [Concomitant]
     Dosage: 2MG PER DAY

REACTIONS (6)
  - WEIGHT DECREASED [None]
  - PSYCHOTIC DISORDER [None]
  - HYPOPROTEINAEMIA [None]
  - DIARRHOEA [None]
  - OEDEMA PERIPHERAL [None]
  - FAECAL INCONTINENCE [None]
